FAERS Safety Report 20913155 (Version 1)
Quarter: 2022Q2

REPORT INFORMATION
  Report Type: Spontaneous
  Country: US (occurrence: US)
  Receive Date: 20220603
  Receipt Date: 20220603
  Transmission Date: 20220721
  Serious: No
  Sender: FDA-Public Use
  Company Number: US-BRAINTREE LABORATORIES, INC.-2022BTE00166

PATIENT
  Sex: Female

DRUGS (4)
  1. SUTAB [Suspect]
     Active Substance: MAGNESIUM SULFATE\POTASSIUM CHLORIDE\SODIUM SULFATE
     Indication: Colonoscopy
     Dosage: 2 X 12 TABLETS, 1X
     Route: 048
     Dates: start: 20220302, end: 202203
  2. LOPRESSOR [Concomitant]
     Active Substance: METOPROLOL TARTRATE
  3. FLONASE [Concomitant]
     Active Substance: FLUTICASONE PROPIONATE
  4. UNSPECIFIED INGREDIENT [Concomitant]
     Active Substance: UNSPECIFIED INGREDIENT

REACTIONS (7)
  - Flushing [Unknown]
  - Ocular hyperaemia [Unknown]
  - Skin irritation [Unknown]
  - Tremor [Unknown]
  - Chills [Unknown]
  - Pruritus [Unknown]
  - Vomiting [Unknown]

NARRATIVE: CASE EVENT DATE: 20220303
